FAERS Safety Report 9109154 (Version 1)
Quarter: 2013Q1

REPORT INFORMATION
  Report Type: Report from Study
  Country: US (occurrence: US)
  Receive Date: 20130222
  Receipt Date: 20130222
  Transmission Date: 20140127
  Serious: Yes (Hospitalization, Other)
  Sender: FDA-Public Use
  Company Number: US-ABBOTT-13P-163-1050330-00

PATIENT
  Sex: Female
  Weight: 59.02 kg

DRUGS (7)
  1. CREON [Suspect]
     Indication: SHORT-BOWEL SYNDROME
     Dosage: ONE BEFORE EACH MEAL
     Dates: start: 201205
  2. HUMIRA [Suspect]
     Indication: CROHN^S DISEASE
     Dates: start: 201103, end: 201202
  3. IMURAN [Suspect]
     Indication: CROHN^S DISEASE
     Dates: start: 201205, end: 201205
  4. MAXIDE [Concomitant]
     Indication: FLUID RETENTION
  5. MAXIDE [Concomitant]
     Indication: SHORT-BOWEL SYNDROME
  6. LEVEMIR INSULIN FLEXPEN [Concomitant]
     Indication: TYPE 2 DIABETES MELLITUS
  7. TYLENOL WITH CODEINE [Concomitant]
     Indication: SHORT-BOWEL SYNDROME

REACTIONS (13)
  - Lupus-like syndrome [Recovered/Resolved]
  - Antinuclear antibody positive [Recovered/Resolved]
  - Pancreatitis [Recovered/Resolved]
  - Nasopharyngitis [Recovered/Resolved]
  - Nasopharyngitis [Not Recovered/Not Resolved]
  - Bronchitis [Not Recovered/Not Resolved]
  - Blood triglycerides increased [Unknown]
  - Hypothyroidism [Not Recovered/Not Resolved]
  - Nasopharyngitis [Recovered/Resolved]
  - Crohn^s disease [Recovered/Resolved]
  - C-reactive protein increased [Unknown]
  - Red blood cell sedimentation rate increased [Unknown]
  - Malaise [Recovered/Resolved]
